FAERS Safety Report 5075516-8 (Version None)
Quarter: 2006Q3

REPORT INFORMATION
  Report Type: 
  Country: None (occurrence: None)
  Receive Date: 20060804
  Receipt Date: 20060724
  Transmission Date: 20061208
  Serious: Yes (Hospitalization)
  Sender: FDA-Public Use
  Company Number: 2006091967

PATIENT
  Age: 85 Year
  Sex: Male
  Weight: 83 kg

DRUGS (4)
  1. AMLODIPINE [Suspect]
     Indication: DRUG USE FOR UNKNOWN INDICATION
     Dosage: 5 MG (5 MG, DAILY), ORAL
     Route: 048
  2. BENAZEPRIL HYDROCHLORIDE (BENAZEPRIL HYDROCHLORIDE) [Suspect]
     Indication: DRUG USE FOR UNKNOWN INDICATION
     Dosage: 1 DF (DAILY), ORAL
     Route: 048
  3. FUROSEMIDE [Suspect]
     Indication: DRUG USE FOR UNKNOWN INDICATION
     Dosage: 40 MG (40 MG, DAILY), ORAL
     Route: 048
  4. ANAFRANIL [Suspect]
     Indication: DRUG USE FOR UNKNOWN INDICATION
     Dosage: 75 MG (75 MG, DAILY), ORAL
     Route: 048
     Dates: end: 20060620

REACTIONS (2)
  - FALL [None]
  - RHABDOMYOLYSIS [None]
